FAERS Safety Report 20485805 (Version 4)
Quarter: 2023Q1

REPORT INFORMATION
  Report Type: Spontaneous
  Country: JP (occurrence: JP)
  Receive Date: 20220217
  Receipt Date: 20230131
  Transmission Date: 20230418
  Serious: Yes (Death, Life-Threatening, Hospitalization, Other)
  Sender: FDA-Public Use
  Company Number: JP-Merck Healthcare KGaA-9299204

PATIENT
  Age: 35 Year
  Sex: Female

DRUGS (2)
  1. ERBITUX [Suspect]
     Active Substance: CETUXIMAB
     Indication: Squamous cell carcinoma of the tongue
     Dosage: UNK, UNKNOWN
     Route: 041
     Dates: start: 20200305, end: 20200910
  2. PACLITAXEL [Concomitant]
     Active Substance: PACLITAXEL
     Indication: Squamous cell carcinoma of the tongue
     Dosage: UNK, UNKNOWN
     Route: 065
     Dates: start: 20200305, end: 20200910

REACTIONS (4)
  - Haemoptysis [Fatal]
  - Thrombophlebitis migrans [Recovering/Resolving]
  - General physical health deterioration [Not Recovered/Not Resolved]
  - Off label use [Unknown]

NARRATIVE: CASE EVENT DATE: 20200323
